FAERS Safety Report 11130184 (Version 1)
Quarter: 2015Q2

REPORT INFORMATION
  Report Type: Spontaneous
  Country: JP (occurrence: JP)
  Receive Date: 20150521
  Receipt Date: 20150521
  Transmission Date: 20150821
  Serious: Yes (Death)
  Sender: FDA-Public Use
  Company Number: JP-MERCK-1504JPN023461

PATIENT
  Age: 65 Year
  Sex: Female
  Weight: 93 kg

DRUGS (22)
  1. ONOACT [Concomitant]
     Active Substance: LANDIOLOL HYDROCHLORIDE
     Indication: TACHYARRHYTHMIA
     Dosage: AS OCCASION ARISES.DOSE UNKNOWN
     Route: 051
     Dates: start: 20150320, end: 20150326
  2. DOBUPUM [Concomitant]
     Active Substance: DOBUTAMINE HYDROCHLORIDE
     Indication: CARDIAC FAILURE
     Dosage: AS OCCASION ARISES.DOSE UNKNOWN
     Route: 051
     Dates: start: 20150322, end: 20150327
  3. HYDROCORTONE [Concomitant]
     Active Substance: HYDROCORTISONE
     Indication: ADRENAL INSUFFICIENCY
  4. ALBUMINAR [Concomitant]
     Active Substance: ALBUMIN (HUMAN)
     Indication: HYPOALBUMINAEMIA
     Dosage: 250 ML, AS OCCASION ARISES
     Route: 051
     Dates: start: 20150320, end: 20150320
  5. CANCIDAS [Suspect]
     Active Substance: CASPOFUNGIN ACETATE
     Indication: SYSTEMIC CANDIDA
  6. NEXIUM [Concomitant]
     Active Substance: ESOMEPRAZOLE MAGNESIUM
     Indication: PEPTIC ULCER
     Dosage: 20 MG, QD, ROUTE OF ADMINISTRATION: TUBE
     Route: 051
     Dates: start: 20150325, end: 20150326
  7. CARBOCYSTEINE [Concomitant]
     Active Substance: CARBOCYSTEINE
     Indication: AIRWAY SECRETION CLEARANCE THERAPY
     Dosage: 500 MG, TID, ROUTE OF ADMINISTRATION: TUBE
     Route: 051
     Dates: start: 20150325, end: 20150326
  8. ACELIO [Concomitant]
     Active Substance: ACETAMINOPHEN
     Indication: BODY TEMPERATURE FLUCTUATION
     Dosage: 1.5 G, UNK, AS OCCASION ARISES
     Route: 051
     Dates: start: 20150325, end: 20150326
  9. ZOSYN [Concomitant]
     Active Substance: PIPERACILLIN SODIUM\TAZOBACTAM SODIUM
     Indication: ABDOMINAL INFECTION
     Dosage: 2.3 G, QID
     Route: 051
     Dates: start: 20150319, end: 20150327
  10. CANCIDAS [Suspect]
     Active Substance: CASPOFUNGIN ACETATE
     Indication: PERITONITIS
     Dosage: 50 MG, QD
     Route: 041
     Dates: start: 20150322, end: 20150326
  11. MILMAG [Concomitant]
     Active Substance: MAGNESIUM HYDROXIDE
     Indication: CONSTIPATION
     Dosage: 5 ML, TID, ROUTE OF ADMINISTRATION: TUBE
     Route: 051
     Dates: start: 20150320, end: 20150326
  12. HYDROCORTONE [Concomitant]
     Active Substance: HYDROCORTISONE
     Indication: INFLAMMATION
     Dosage: AS OCCASION ARISES.DOSE UNKNOWN
     Route: 051
     Dates: start: 20150320, end: 20150327
  13. VENOGLOBULIN-IH [Concomitant]
     Indication: SEPTIC SHOCK
     Dosage: 5 G, QD
     Route: 051
     Dates: start: 20150320, end: 20150322
  14. CANCIDAS [Suspect]
     Active Substance: CASPOFUNGIN ACETATE
     Indication: SYSTEMIC CANDIDA
  15. PROPOFOL. [Concomitant]
     Active Substance: PROPOFOL
     Indication: SEDATION
     Dosage: AS OCCASION ARISES.DOSE UNKNOWN
     Route: 051
     Dates: start: 20150319, end: 20150323
  16. FENTANYL CITRATE. [Concomitant]
     Active Substance: FENTANYL CITRATE
     Indication: SEDATION
     Dosage: AS OCCASION ARISES.DOSE UNKNOWN
     Route: 051
     Dates: start: 20150319, end: 20150325
  17. CANCIDAS [Suspect]
     Active Substance: CASPOFUNGIN ACETATE
     Indication: PERITONITIS
     Dosage: 70 MG, QD
     Route: 041
     Dates: start: 20150321, end: 20150321
  18. NOREPINEPHRINE [Concomitant]
     Active Substance: NOREPINEPHRINE\NOREPINEPHRINE BITARTRATE
     Indication: SEPTIC SHOCK
     Dosage: AS OCCASION ARISES.DOSE UNKNOWN
     Route: 051
     Dates: start: 20150319, end: 20150324
  19. FENTANYL CITRATE. [Concomitant]
     Active Substance: FENTANYL CITRATE
     Indication: ANALGESIC THERAPY
  20. DOBUPUM [Concomitant]
     Active Substance: DOBUTAMINE HYDROCHLORIDE
     Indication: BLOOD PRESSURE MANAGEMENT
  21. VANCOMYCIN HYDROCHLORIDE. [Concomitant]
     Active Substance: VANCOMYCIN HYDROCHLORIDE
     Indication: ABDOMINAL INFECTION
     Dosage: 1 G, QD
     Route: 051
     Dates: start: 20150320, end: 20150327
  22. THYRADIN-S [Concomitant]
     Active Substance: LEVOTHYROXINE
     Indication: HYPOTHYROIDISM
     Dosage: 0.5 G, QD, ROUTE OF ADMINISTRATION: TUBE
     Route: 051
     Dates: start: 20150325, end: 20150326

REACTIONS (2)
  - Peritonitis [Fatal]
  - Sepsis [Fatal]

NARRATIVE: CASE EVENT DATE: 20150326
